FAERS Safety Report 23981170 (Version 3)
Quarter: 2025Q2

REPORT INFORMATION
  Report Type: Report from Study
  Country: US (occurrence: US)
  Receive Date: 20240617
  Receipt Date: 20250624
  Transmission Date: 20250717
  Serious: Yes (Other)
  Sender: ABBVIE
  Company Number: US-ABBVIE-5800055

PATIENT
  Sex: Male

DRUGS (1)
  1. RINVOQ [Suspect]
     Active Substance: UPADACITINIB
     Indication: Rheumatoid arthritis
     Route: 048
     Dates: start: 20210223, end: 202302

REACTIONS (3)
  - Knee operation [Not Recovered/Not Resolved]
  - Therapeutic product effect incomplete [Unknown]
  - Knee arthroplasty [Not Recovered/Not Resolved]
